FAERS Safety Report 7748148-8 (Version None)
Quarter: 2011Q3

REPORT INFORMATION
  Report Type: 
  Country: None (occurrence: None)
  Receive Date: 20110913
  Receipt Date: 20110829
  Transmission Date: 20111222
  Serious: Yes (Hospitalization, Other)
  Sender: FDA-Public Use
  Company Number: NL-WATSON-2011-14287

PATIENT
  Sex: Female

DRUGS (1)
  1. CLOMIPRAMINE HCL [Suspect]
     Indication: PRODUCT USED FOR UNKNOWN INDICATION
     Dosage: UNK

REACTIONS (5)
  - PRE-ECLAMPSIA [None]
  - CAESAREAN SECTION [None]
  - DELAYED DELIVERY [None]
  - MATERNAL EXPOSURE DURING PREGNANCY [None]
  - DIABETES MELLITUS [None]
